FAERS Safety Report 24301484 (Version 1)
Quarter: 2024Q3

REPORT INFORMATION
  Report Type: Spontaneous
  Country: AR (occurrence: AR)
  Receive Date: 20240910
  Receipt Date: 20240910
  Transmission Date: 20241017
  Serious: Yes (Hospitalization)
  Sender: GLAXOSMITHKLINE
  Company Number: AR-GLAXOSMITHKLINE-AR2023AMR102386

PATIENT

DRUGS (1)
  1. NUCALA [Suspect]
     Active Substance: MEPOLIZUMAB
     Indication: Asthma
     Dosage: 100 MG, Q4W(28 DAYS)
     Dates: start: 20210825, end: 20240411

REACTIONS (5)
  - Disease recurrence [Recovered/Resolved]
  - Blood pressure increased [Recovered/Resolved]
  - COVID-19 [Recovered/Resolved]
  - Bronchospasm [Not Recovered/Not Resolved]
  - Influenza [Recovering/Resolving]

NARRATIVE: CASE EVENT DATE: 20230501
